FAERS Safety Report 4759845-0 (Version None)
Quarter: 2005Q3

REPORT INFORMATION
  Report Type: 
  Country: None (occurrence: None)
  Receive Date: 20050831
  Receipt Date: 20050831
  Transmission Date: 20060218
  Serious: Yes (Hospitalization)
  Sender: FDA-Public Use
  Company Number: None

PATIENT
  Age: 26 Year
  Sex: Male

DRUGS (7)
  1. PHENYTOIN [Suspect]
     Indication: SARCOIDOSIS
     Dosage: 300 MG QHS PO
     Route: 048
  2. CYPROHEPTADINE-PERIACTIN [Concomitant]
  3. METRONIDAZOLE [Concomitant]
  4. AMBIEN [Concomitant]
  5. DIFLUCAN [Concomitant]
  6. NYSTATIN-MYCOSTATIN [Concomitant]
  7. PREDNISONE-DELTASONE [Concomitant]

REACTIONS (3)
  - ANTICONVULSANT DRUG LEVEL INCREASED [None]
  - ASTHENIA [None]
  - MENTAL STATUS CHANGES [None]
